FAERS Safety Report 13796928 (Version 1)
Quarter: 2017Q3

REPORT INFORMATION
  Report Type: Spontaneous
  Country: CA (occurrence: CA)
  Receive Date: 20170726
  Receipt Date: 20170726
  Transmission Date: 20171127
  Serious: Yes (Death, Hospitalization, Other)
  Sender: FDA-Public Use
  Company Number: CA-BAXTER-2017BAX028329

PATIENT
  Age: 66 Year
  Sex: Female

DRUGS (2)
  1. DIANEAL LOW CALCIUM PERITONEAL DIALYSIS SOLUTION WITH DEXTROSE [Suspect]
     Active Substance: CALCIUM CHLORIDE\DEXTROSE\MAGNESIUM CHLORIDE\SODIUM CHLORIDE\SODIUM LACTATE
     Indication: PERITONEAL DIALYSIS
     Route: 033
     Dates: start: 201704, end: 20170711
  2. INSULIN [Concomitant]
     Active Substance: INSULIN NOS
     Indication: PRODUCT USED FOR UNKNOWN INDICATION
     Route: 065

REACTIONS (13)
  - Asthenia [Unknown]
  - Blood pressure abnormal [Unknown]
  - Peritoneal dialysis complication [Unknown]
  - Neuropathic arthropathy [Fatal]
  - Condition aggravated [Unknown]
  - Disease complication [Unknown]
  - Diabetic complication [Fatal]
  - Diabetes mellitus [Fatal]
  - Angiopathy [Unknown]
  - Cardiac arrest [Fatal]
  - Bone disorder [Unknown]
  - Localised infection [Fatal]
  - Sepsis [Fatal]

NARRATIVE: CASE EVENT DATE: 20170711
